FAERS Safety Report 10912641 (Version 1)
Quarter: 2015Q1

REPORT INFORMATION
  Report Type: Spontaneous
  Country: GB (occurrence: None)
  Receive Date: 20150310
  Receipt Date: 20150310
  Transmission Date: 20150721
  Serious: Yes (Other)
  Sender: FDA-Public Use
  Company Number: 20150596

PATIENT
  Sex: Female

DRUGS (1)
  1. METOJECT (METHOTREXATE DISODIUM) [Suspect]
     Active Substance: METHOTREXATE SODIUM
     Dosage: SOLUTION FOR INJECTION IN PRE-FILLED SYRINGE

REACTIONS (1)
  - Neoplasm malignant [None]
